FAERS Safety Report 6016308-2 (Version None)
Quarter: 2008Q4

REPORT INFORMATION
  Report Type: 
  Country: None (occurrence: None)
  Receive Date: 20081222
  Receipt Date: 20081211
  Transmission Date: 20090506
  Serious: Yes (Death)
  Sender: FDA-Public Use
  Company Number: US-JNJFOC-20071004594

PATIENT
  Sex: Male
  Weight: 7.15 kg

DRUGS (2)
  1. INFANT TYLENOL COLD DECONGESTANT PLUS COUGH [Suspect]
     Indication: NASOPHARYNGITIS
  2. INFANTS COLD AND COUGH PREPARTION [Suspect]
     Indication: NASOPHARYNGITIS

REACTIONS (1)
  - DRUG TOXICITY [None]
